FAERS Safety Report 17034499 (Version 4)
Quarter: 2020Q1

REPORT INFORMATION
  Report Type: Spontaneous
  Country: CO (occurrence: CO)
  Receive Date: 20191115
  Receipt Date: 20200222
  Transmission Date: 20200409
  Serious: Yes (Death, Hospitalization, Disabling, Other)
  Sender: FDA-Public Use
  Company Number: CO-UNITED THERAPEUTICS-UNT-2019-018758

PATIENT

DRUGS (11)
  1. FUROSEMIDA [Concomitant]
     Active Substance: FUROSEMIDE
     Indication: CARDIAC FAILURE
     Dosage: 40 MG, Q12H
     Route: 048
     Dates: start: 20190110
  2. SPIRONOLACTONE. [Concomitant]
     Active Substance: SPIRONOLACTONE
     Indication: CARDIAC FAILURE
     Dosage: 25 MG, Q12H
     Route: 048
     Dates: start: 20180915
  3. WARFARINA [Concomitant]
     Active Substance: WARFARIN
     Indication: ANTICOAGULANT THERAPY
     Dosage: 5 MG, EVERY 24 HOURS
     Route: 048
     Dates: start: 20180915
  4. RANITIDINE. [Concomitant]
     Active Substance: RANITIDINE
     Indication: GASTROINTESTINAL DISORDER PROPHYLAXIS
     Dosage: 150 MG, Q8H
     Route: 048
     Dates: start: 20191216
  5. AMBRISENTAN [Concomitant]
     Active Substance: AMBRISENTAN
     Indication: PULMONARY HYPERTENSION
     Dosage: 10 MG, EVERY 24 HOURS
     Route: 048
     Dates: start: 20180915
  6. REMODULIN [Suspect]
     Active Substance: TREPROSTINIL
     Dosage: 0.074 ?G/KG, CONTINUING
     Route: 058
     Dates: start: 202002, end: 20200217
  7. REMODULIN [Suspect]
     Active Substance: TREPROSTINIL
     Indication: PULMONARY ARTERIAL HYPERTENSION
     Dosage: 0.062 ?G/KG, CONTINUING
     Route: 058
     Dates: start: 20180402
  8. METILDIGOXIN [Concomitant]
     Active Substance: METILDIGOXIN
     Indication: CARDIAC FAILURE
     Dosage: 0.1 MG, QD (EVERY DAY)
     Route: 048
     Dates: start: 20180915
  9. MOSAPRIN [Concomitant]
     Indication: CARDIAC FAILURE
     Dosage: 5 MG, Q8H
     Route: 048
     Dates: start: 20180603
  10. RIOCIGUAT. [Concomitant]
     Active Substance: RIOCIGUAT
     Indication: PULMONARY HYPERTENSION
     Dosage: 1 MG, Q8H
     Route: 048
     Dates: start: 20180110
  11. REMODULIN [Suspect]
     Active Substance: TREPROSTINIL
     Indication: PULMONARY HYPERTENSION
     Dosage: 0.064 ?G/KG, CONTINUING
     Route: 058
     Dates: start: 202002

REACTIONS (13)
  - Pulmonary hypertension [Not Recovered/Not Resolved]
  - Thirst [Unknown]
  - Dyspnoea [Unknown]
  - Mobility decreased [Not Recovered/Not Resolved]
  - Fatigue [Unknown]
  - Pallor [Unknown]
  - Cardio-respiratory arrest [Fatal]
  - Oedema peripheral [Not Recovered/Not Resolved]
  - Abdominal pain upper [Not Recovered/Not Resolved]
  - Cardiac failure [Not Recovered/Not Resolved]
  - Abdominal distension [Unknown]
  - Pleural effusion [Recovering/Resolving]
  - Cough [Unknown]

NARRATIVE: CASE EVENT DATE: 20191029
